FAERS Safety Report 19194370 (Version 1)
Quarter: 2021Q2

REPORT INFORMATION
  Report Type: Spontaneous
  Country: US (occurrence: US)
  Receive Date: 20210429
  Receipt Date: 20210429
  Transmission Date: 20210717
  Serious: Yes (Hospitalization)
  Sender: FDA-Public Use
  Company Number: None

PATIENT
  Age: 60 Year
  Sex: Male
  Weight: 109.8 kg

DRUGS (14)
  1. ULORIC [Concomitant]
     Active Substance: FEBUXOSTAT
  2. METOPROLOL SUCCINATE. [Concomitant]
     Active Substance: METOPROLOL SUCCINATE
  3. SENNOSIDES?DOCUSATE SODIUM [Concomitant]
     Active Substance: DOCUSATE SODIUM\SENNOSIDES
  4. VALSARTAN. [Concomitant]
     Active Substance: VALSARTAN
  5. SERTRALINE [Concomitant]
     Active Substance: SERTRALINE HYDROCHLORIDE
  6. MAGNESIUM OXIDE. [Concomitant]
     Active Substance: MAGNESIUM OXIDE
  7. MIRALAX [Concomitant]
     Active Substance: POLYETHYLENE GLYCOL 3350
  8. FENOFIBRATE. [Concomitant]
     Active Substance: FENOFIBRATE
  9. MONTELUKAST [Concomitant]
     Active Substance: MONTELUKAST SODIUM
  10. TIOTROPIURN BROMIDE [Concomitant]
  11. LORATIDINE [Concomitant]
     Active Substance: LORATADINE
  12. RITUXIMAB (MOAB C2B8 ANTI CD20, CHIMERIC) [Suspect]
     Active Substance: RITUXIMAB
     Dates: end: 20210301
  13. PROTONIX [Concomitant]
     Active Substance: PANTOPRAZOLE SODIUM
  14. TYLENOL [Concomitant]
     Active Substance: ACETAMINOPHEN

REACTIONS (7)
  - Anaemia [None]
  - Haemoglobin decreased [None]
  - Erythroblastosis [None]
  - Myelodysplastic syndrome [None]
  - Metastasis [None]
  - Bone marrow transplant [None]
  - Colon adenoma [None]

NARRATIVE: CASE EVENT DATE: 20210426
